FAERS Safety Report 13844303 (Version 7)
Quarter: 2022Q2

REPORT INFORMATION
  Report Type: Report from Study
  Country: US (occurrence: None)
  Receive Date: 20170808
  Receipt Date: 20220513
  Transmission Date: 20220721
  Serious: Yes (Death, Hospitalization, Other)
  Sender: FDA-Public Use
  Company Number: US-ROCHE-1901789

PATIENT
  Age: 88 Year
  Sex: Female
  Weight: 61.18 kg

DRUGS (17)
  1. BEVACIZUMAB [Suspect]
     Active Substance: BEVACIZUMAB
     Indication: Malignant melanoma
     Dosage: INDUCTION (CYCLE=21 DAYS)?ON DAY 1 OF CYCLES 1-4?DOSE 916 MG.
     Route: 042
     Dates: start: 20161116
  2. BEVACIZUMAB [Suspect]
     Active Substance: BEVACIZUMAB
     Route: 042
     Dates: start: 20161209
  3. IPILIMUMAB [Suspect]
     Active Substance: IPILIMUMAB
     Indication: Malignant melanoma
     Route: 011
     Dates: start: 20170119
  4. IPILIMUMAB [Suspect]
     Active Substance: IPILIMUMAB
     Route: 011
  5. AMLODIPINE [Concomitant]
     Active Substance: AMLODIPINE BESYLATE
  6. LABETALOL [Concomitant]
     Active Substance: LABETALOL\LABETALOL HYDROCHLORIDE
  7. HYDROCHLOROTHIAZIDE\LOSARTAN [Concomitant]
     Active Substance: HYDROCHLOROTHIAZIDE\LOSARTAN
  8. OMEPRAZOLE [Concomitant]
     Active Substance: OMEPRAZOLE
  9. PANTOPRAZOLE [Concomitant]
     Active Substance: PANTOPRAZOLE
  10. LORATADINE [Concomitant]
     Active Substance: LORATADINE
  11. SUCRALFATE [Concomitant]
     Active Substance: SUCRALFATE
  12. ESCITALOPRAM [Concomitant]
     Active Substance: ESCITALOPRAM OXALATE
  13. TRAMADOL [Concomitant]
     Active Substance: TRAMADOL
  14. METHOCARBAMOL [Concomitant]
     Active Substance: METHOCARBAMOL
  15. ALPRAZOLAM [Concomitant]
     Active Substance: ALPRAZOLAM
  16. LEVOTHYROXINE [Concomitant]
     Active Substance: LEVOTHYROXINE
  17. ASPIRIN [Concomitant]
     Active Substance: ASPIRIN

REACTIONS (6)
  - Cardiac arrest [Fatal]
  - Transient ischaemic attack [Recovered/Resolved]
  - Pneumonia [Unknown]
  - Hypertension [Unknown]
  - Hypokalaemia [Recovered/Resolved]
  - Atrial fibrillation [Unknown]

NARRATIVE: CASE EVENT DATE: 20170117
